FAERS Safety Report 22116308 (Version 2)
Quarter: 2023Q2

REPORT INFORMATION
  Report Type: Spontaneous
  Country: NO (occurrence: NO)
  Receive Date: 20230320
  Receipt Date: 20230527
  Transmission Date: 20230721
  Serious: Yes (Other)
  Sender: FDA-Public Use
  Company Number: None

PATIENT
  Age: 19 Year
  Sex: Male
  Weight: 73 kg

DRUGS (3)
  1. KEPPRA [Suspect]
     Active Substance: LEVETIRACETAM
     Indication: Partial seizures
     Dosage: INITIATED WITH HIGHER DOSES FOR TWO DAYS IN HOSPITAL.
     Dates: start: 20221129, end: 20221212
  2. ACETYLSALISYLSYRE [Concomitant]
     Indication: Thrombosis prophylaxis
     Dosage: 75 MILLIGRAM, ONCE DAILY (QD)
     Dates: start: 20210825
  3. KANDESARTAN [Concomitant]
     Indication: Hypertension
     Dosage: 8 MILLIGRAM, ONCE DAILY (QD)
     Dates: start: 20211021

REACTIONS (11)
  - Rash macular [Recovered/Resolved]
  - Lacrimation increased [Recovered/Resolved]
  - Dizziness [Recovered/Resolved]
  - Nausea [Recovered/Resolved]
  - Rash pruritic [Recovered/Resolved]
  - Urticaria [Recovered/Resolved]
  - Fatigue [Recovered/Resolved]
  - Hypersensitivity [Recovered/Resolved]
  - Feeling hot [Recovered/Resolved]
  - Puncture site rash [Recovered/Resolved]
  - Throat tightness [Recovered/Resolved]

NARRATIVE: CASE EVENT DATE: 20221207
